FAERS Safety Report 14179431 (Version 4)
Quarter: 2018Q1

REPORT INFORMATION
  Report Type: Report from Study
  Country: CH (occurrence: CH)
  Receive Date: 20171110
  Receipt Date: 20180112
  Transmission Date: 20180508
  Serious: Yes (Life-Threatening, Hospitalization, Other)
  Sender: FDA-Public Use
  Company Number: CH-SAOL THERAPEUTICS-2017SAO01748

PATIENT
  Sex: Female

DRUGS (3)
  1. CLONIDINE. [Suspect]
     Active Substance: CLONIDINE
     Dosage: 137.91 ?G, \DAY
     Route: 037
     Dates: start: 20171031
  2. BACLOFEN. [Suspect]
     Active Substance: BACLOFEN
     Dosage: 129.91 ?G, \DAY
     Route: 037
     Dates: start: 20171031
  3. FENTANYL. [Suspect]
     Active Substance: FENTANYL
     Dosage: 161.91 ?G, \DAY
     Route: 037
     Dates: start: 20171031

REACTIONS (6)
  - Wrong technique in product usage process [Unknown]
  - Cardio-respiratory arrest [Recovered/Resolved]
  - Loss of consciousness [Recovered/Resolved]
  - Overdose [Recovered/Resolved]
  - Seizure [Recovered/Resolved]
  - Feeling abnormal [Recovered/Resolved]

NARRATIVE: CASE EVENT DATE: 2017
